FAERS Safety Report 9918743 (Version 3)
Quarter: 2014Q2

REPORT INFORMATION
  Report Type: Spontaneous
  Country: IT (occurrence: IT)
  Receive Date: 20140224
  Receipt Date: 20140527
  Transmission Date: 20141212
  Serious: Yes (Other)
  Sender: FDA-Public Use
  Company Number: IT-ACCORD-022027

PATIENT
  Age: 70 Year
  Sex: Male

DRUGS (4)
  1. FLUOROURACIL [Suspect]
     Indication: COLON NEOPLASM
     Dosage: ALSO RECEIVED 2000MG FU IN ELASTOMER FOR 48 HOURS UNKNOWN PERIOD
     Route: 042
     Dates: start: 20131201, end: 20140201
  2. CRESTOR [Concomitant]
     Route: 048
  3. OXALIPLATIN [Suspect]
     Indication: COLON NEOPLASM
     Route: 042
     Dates: start: 20131201, end: 20140201
  4. AVASTIN [Suspect]
     Indication: COLON NEOPLASM
     Route: 042
     Dates: start: 20131201, end: 20140201

REACTIONS (1)
  - Thrombosis [Recovering/Resolving]
